FAERS Safety Report 8025796-1 (Version None)
Quarter: 2012Q1

REPORT INFORMATION
  Report Type: 
  Country: None (occurrence: None)
  Receive Date: 20120105
  Receipt Date: 20120102
  Transmission Date: 20120608
  Serious: Yes (Hospitalization)
  Sender: FDA-Public Use
  Company Number: BR-ASTRAZENECA-2012SE00427

PATIENT
  Age: 578 Month
  Sex: Male
  Weight: 43 kg

DRUGS (2)
  1. NEXIUM [Suspect]
     Indication: HIATUS HERNIA
     Route: 048
     Dates: start: 20110801, end: 20111001
  2. NEXIUM [Suspect]
     Route: 048

REACTIONS (2)
  - HAEMATEMESIS [None]
  - DRUG DOSE OMISSION [None]
